FAERS Safety Report 6787880-X (Version None)
Quarter: 2010Q2

REPORT INFORMATION
  Report Type: 
  Country: None (occurrence: None)
  Receive Date: 20100621
  Receipt Date: 20100604
  Transmission Date: 20101027
  Serious: Yes (Other)
  Sender: FDA-Public Use
  Company Number: AUR-APL-2010-01514

PATIENT
  Age: 46 Year
  Sex: Female

DRUGS (4)
  1. TOPIRAMATE [Suspect]
     Indication: CONVULSION
     Dosage: 50MG,BID
  2. PREGABALIN [Concomitant]
  3. TEMOZOLOMIDE [Concomitant]
  4. RADIATION  TREATMENTS [Concomitant]

REACTIONS (3)
  - BRADYKINESIA [None]
  - COGNITIVE DISORDER [None]
  - SOMNOLENCE [None]
